FAERS Safety Report 8935186 (Version 1)
Quarter: 2012Q4

REPORT INFORMATION
  Report Type: 
  Country: NL (occurrence: NL)
  Receive Date: 20121129
  Receipt Date: 20121129
  Transmission Date: 20130627
  Serious: Yes (Disabling)
  Sender: FDA-Public Use
  Company Number: PHHY2012NL100538

PATIENT
  Sex: Female
  Weight: 85 kg

DRUGS (7)
  1. ZOMETA [Suspect]
     Indication: BREAST CANCER METASTATIC
     Dosage: 4 mg/ 100ml
     Route: 042
     Dates: start: 201105, end: 201112
  2. ZOMETA [Suspect]
     Dosage: 4 mg/ 100ml
     Route: 042
     Dates: start: 20110104
  3. ANTIBIOTIC [Concomitant]
     Indication: CYSTITIS
  4. APD [Concomitant]
     Indication: METASTASES TO BONE
     Dosage: UNK UKN, UNK
  5. CODIOVAN [Concomitant]
     Dosage: 160/25  U, QD
     Dates: start: 2009
  6. ACETYLSALICYLIC ACID [Concomitant]
     Dosage: 80 mg, QD
     Dates: start: 2009
  7. SIMVASTATIN [Concomitant]
     Dosage: 20 mg, QD
     Dates: start: 2009

REACTIONS (6)
  - Restless legs syndrome [Unknown]
  - Malaise [Unknown]
  - Myalgia [Unknown]
  - Arthralgia [Unknown]
  - Pain in extremity [Unknown]
  - Influenza like illness [Unknown]
